FAERS Safety Report 17730540 (Version 2)
Quarter: 2025Q3

REPORT INFORMATION
  Report Type: Spontaneous
  Country: EU (occurrence: EU)
  Receive Date: 20200430
  Receipt Date: 20250710
  Transmission Date: 20251021
  Serious: Yes (Other)
  Sender: MYLAN
  Company Number: EU-VIIV HEALTHCARE LIMITED-IT2020GSK055178

PATIENT

DRUGS (3)
  1. ABACAVIR [Suspect]
     Active Substance: ABACAVIR
     Indication: HIV infection
  2. LAMIVUDINE [Suspect]
     Active Substance: LAMIVUDINE
     Indication: HIV infection
  3. DARUNAVIR\RITONAVIR [Suspect]
     Active Substance: DARUNAVIR\RITONAVIR
     Indication: HIV infection

REACTIONS (2)
  - Viral mutation identified [Unknown]
  - Blood HIV RNA increased [Not Recovered/Not Resolved]
